FAERS Safety Report 5574011-7 (Version None)
Quarter: 2007Q4

REPORT INFORMATION
  Report Type: 
  Country: None (occurrence: None)
  Receive Date: 20071221
  Receipt Date: 20071210
  Transmission Date: 20080405
  Serious: Yes (Hospitalization, Other)
  Sender: FDA-Public Use
  Company Number: SPV1-2007-05040

PATIENT
  Age: 30 Year
  Sex: Female

DRUGS (1)
  1. CARBAMAZEPINE [Suspect]
     Dosage: 200 MG, 1X/DAY: QD

REACTIONS (10)
  - ABDOMINAL PAIN UPPER [None]
  - BRONCHIOLITIS [None]
  - DERMATOSIS [None]
  - DRUG RASH WITH EOSINOPHILIA AND SYSTEMIC SYMPTOMS [None]
  - ERYTHEMA [None]
  - NAUSEA [None]
  - SKIN EXFOLIATION [None]
  - TACHYPNOEA [None]
  - ULCER [None]
  - VOMITING [None]
